FAERS Safety Report 6363530-1 (Version None)
Quarter: 2009Q3

REPORT INFORMATION
  Report Type: 
  Country: None (occurrence: None)
  Receive Date: 20090919
  Receipt Date: 20090629
  Transmission Date: 20100115
  Serious: No
  Sender: FDA-Public Use
  Company Number: US-ABBOTT-09P-163-0582513-00

PATIENT
  Sex: Female
  Weight: 81.72 kg

DRUGS (11)
  1. HUMIRA [Suspect]
     Indication: CROHN'S DISEASE
     Route: 058
     Dates: start: 20071201, end: 20071201
  2. HUMIRA [Suspect]
     Route: 058
  3. HUMIRA [Suspect]
     Route: 058
  4. ASACOL [Concomitant]
     Indication: CROHN'S DISEASE
  5. MS CONTIN [Concomitant]
     Indication: BACK PAIN
  6. PAXIL [Concomitant]
     Indication: NERVOUSNESS
  7. PAXIL [Concomitant]
     Indication: ANXIETY
  8. LOTENSIN [Concomitant]
     Indication: HYPERTENSION
  9. UNKNOWN MEDICATION [Concomitant]
     Indication: BLOOD CHOLESTEROL INCREASED
  10. AMBIEN [Concomitant]
     Indication: INSOMNIA
  11. PREMARIN [Concomitant]
     Indication: HOT FLUSH

REACTIONS (1)
  - DRUG DOSE OMISSION [None]
